FAERS Safety Report 7141539-8 (Version None)
Quarter: 2010Q4

REPORT INFORMATION
  Report Type: 
  Country: None (occurrence: None)
  Receive Date: 20101207
  Receipt Date: 20101202
  Transmission Date: 20110411
  Serious: Yes (Other)
  Sender: FDA-Public Use
  Company Number: US-SHIRE-SPV1-2010-02094

PATIENT
  Sex: Male
  Weight: 45.351 kg

DRUGS (3)
  1. ADDERALL XR 10 [Suspect]
     Indication: ATTENTION DEFICIT/HYPERACTIVITY DISORDER
     Dosage: 30 MG, UNK
     Route: 048
     Dates: start: 20060101, end: 20070101
  2. ADDERALL XR 10 [Suspect]
     Dosage: 5 MG, 1X/DAY:QD
     Route: 048
     Dates: start: 20060101, end: 20060101
  3. CONCERTA [Concomitant]
     Indication: ATTENTION DEFICIT/HYPERACTIVITY DISORDER
     Dosage: UNK MG, UNKNOWN
     Route: 048

REACTIONS (5)
  - AFFECT LABILITY [None]
  - DECREASED APPETITE [None]
  - NIGHTMARE [None]
  - SLEEP DISORDER [None]
  - SUICIDAL IDEATION [None]
